FAERS Safety Report 4797446-9 (Version None)
Quarter: 2005Q4

REPORT INFORMATION
  Report Type: 
  Country: None (occurrence: None)
  Receive Date: 20051006
  Receipt Date: 20051006
  Transmission Date: 20060501
  Serious: Yes (Hospitalization)
  Sender: FDA-Public Use
  Company Number: None

PATIENT
  Sex: Male

DRUGS (13)
  1. WARFARIN SODIUM [Suspect]
     Indication: ATRIAL FIBRILLATION
     Dosage: 5 MG PO Q24
     Route: 048
  2. ENALAPRIL [Concomitant]
  3. SIMVASTATIN [Concomitant]
  4. ISOSORBIDE MONONITRATE [Concomitant]
  5. FLUDROCORTISONE [Concomitant]
  6. ASPIRIN [Concomitant]
  7. DOCUSATE [Concomitant]
  8. LEVOTHYROXINE [Concomitant]
  9. NEPHRO CAP [Concomitant]
  10. PHOSLO [Concomitant]
  11. LANSOPRAZOLE [Concomitant]
  12. CITALOPRAM [Concomitant]
  13. AMIODARONE [Concomitant]

REACTIONS (3)
  - CANDIDIASIS [None]
  - FUNGAEMIA [None]
  - INTERNATIONAL NORMALISED RATIO INCREASED [None]
